FAERS Safety Report 4337313-8 (Version None)
Quarter: 2004Q2

REPORT INFORMATION
  Report Type: 
  Country: None (occurrence: None)
  Receive Date: 20040408
  Receipt Date: 20040326
  Transmission Date: 20050107
  Serious: Yes (Other)
  Sender: FDA-Public Use
  Company Number: 2004019160

PATIENT
  Age: 78 Year
  Sex: Male
  Weight: 25.4014 kg

DRUGS (5)
  1. HYDROXYZINE HCL [Suspect]
     Indication: PREMEDICATION
     Dosage: 25 MG, INTRAMUSCULAR
     Route: 030
     Dates: start: 20030801
  2. ATROPINE [Suspect]
     Indication: PREMEDICATION
     Dosage: 0.5 MG, INTRAMUSCULAR
     Route: 030
     Dates: start: 20030801
  3. THIAMYLAL (THIAMYLAL) [Suspect]
     Indication: ANAESTHESIA
     Dosage: 300 MG
     Dates: start: 20030801
  4. VECURONIUM (VECURONIUM) [Suspect]
     Indication: INTUBATION
     Dosage: 6 MG
     Dates: start: 20030801
  5. SEVOFLURANE [Suspect]
     Indication: MAINTENANCE OF ANAESTHESIA
     Dosage: 1-2%, INHALATION
     Dates: start: 20030801

REACTIONS (2)
  - BRADYCARDIA [None]
  - PROCEDURAL HYPOTENSION [None]
